FAERS Safety Report 7899146-5 (Version None)
Quarter: 2011Q4

REPORT INFORMATION
  Report Type: 
  Country: None (occurrence: None)
  Receive Date: 20111107
  Receipt Date: 20110913
  Transmission Date: 20120403
  Serious: Yes (Hospitalization)
  Sender: FDA-Public Use
  Company Number: US-AMGEN-USASP2011040505

PATIENT
  Age: 44 Year
  Sex: Female
  Weight: 79.365 kg

DRUGS (6)
  1. METOPROLOL [Concomitant]
  2. SYNTHROID [Concomitant]
  3. ENBREL [Suspect]
  4. ENBREL [Suspect]
     Indication: RHEUMATOID ARTHRITIS
     Dosage: 50 MG, QWK
     Route: 058
     Dates: start: 20110624, end: 20110711
  5. RAMIPRIL [Concomitant]
  6. PREDNISONE [Concomitant]

REACTIONS (3)
  - INJECTION SITE REACTION [None]
  - HYPERSENSITIVITY [None]
  - URTICARIA [None]
